FAERS Safety Report 15452334 (Version 1)
Quarter: 2018Q4

REPORT INFORMATION
  Report Type: Spontaneous
  Country: CA (occurrence: CA)
  Receive Date: 20181001
  Receipt Date: 20181001
  Transmission Date: 20190204
  Serious: Yes (Hospitalization)
  Sender: FDA-Public Use
  Company Number: CA-NATCO PHARMA-2018NAT00144

PATIENT
  Age: 35 Year
  Sex: Male

DRUGS (4)
  1. AZACITIDINE. [Suspect]
     Active Substance: AZACITIDINE
     Indication: ACUTE MYELOID LEUKAEMIA
     Dosage: 75 MG/M2, 1X/DAY X 7 DAYS
     Route: 065
  2. AZACITIDINE. [Suspect]
     Active Substance: AZACITIDINE
     Dosage: ONE ADDITIONAL CYCLE
     Route: 065
  3. NIVOLUMAB [Suspect]
     Active Substance: NIVOLUMAB
     Indication: HODGKIN^S DISEASE
     Dosage: 3 MG/KG, 2X/WEEK
     Route: 065
     Dates: start: 201508
  4. NIVOLUMAB [Suspect]
     Active Substance: NIVOLUMAB
     Dosage: ONE ADDITIONAL CYCLE
     Route: 065

REACTIONS (1)
  - Myositis [Recovered/Resolved]
